FAERS Safety Report 5025584-4 (Version None)
Quarter: 2006Q2

REPORT INFORMATION
  Report Type: 
  Country: None (occurrence: None)
  Receive Date: 20060426
  Receipt Date: 20060213
  Transmission Date: 20061013
  Serious: Yes (Other)
  Sender: FDA-Public Use
  Company Number: 2006008427

PATIENT
  Age: 89 Year
  Sex: Female

DRUGS (5)
  1. LYRICA [Suspect]
     Indication: PAIN
     Dosage: 100 MG (50 MG, 2 IN 1 D)
     Dates: start: 20060109
  2. FOSAMAX [Concomitant]
  3. ZOLOFT [Concomitant]
  4. ZYRTEC [Concomitant]
  5. LEVODOPA-CARBIDOPA (CARBIDOPA, LEVODOPA) [Concomitant]

REACTIONS (3)
  - DRUG INEFFECTIVE [None]
  - HALLUCINATION [None]
  - PAIN [None]
